FAERS Safety Report 5228087-7 (Version None)
Quarter: 2007Q1

REPORT INFORMATION
  Report Type: 
  Country: None (occurrence: None)
  Receive Date: 20061201
  Receipt Date: 20060929
  Transmission Date: 20070707
  Serious: No
  Sender: FDA-Public Use
  Company Number: US200610000241

PATIENT
  Age: 58 Year
  Sex: Male

DRUGS (6)
  1. CYMBALTA [Suspect]
     Indication: DEPRESSION
     Dosage: 60 MG, ORAL
     Route: 048
     Dates: start: 20060801, end: 20060801
  2. CORTEF (HYDROCDORTISONE ACETATE) [Concomitant]
  3. OXYCODONE HYDROCHLORIDE (OXOCODONE HYDROCHLORIDE) [Concomitant]
  4. LISINOPRIL [Concomitant]
  5. VITAMINS [Concomitant]
  6. XANAX /USA/ (ALPRAZOLAM) [Concomitant]

REACTIONS (6)
  - ABDOMINAL PAIN [None]
  - ANOREXIA [None]
  - BLOOD PRESSURE INCREASED [None]
  - DEPRESSION [None]
  - NAUSEA [None]
  - SUICIDAL IDEATION [None]
